FAERS Safety Report 6047576-9 (Version None)
Quarter: 2009Q1

REPORT INFORMATION
  Report Type: 
  Country: None (occurrence: None)
  Receive Date: 20090123
  Receipt Date: 20090116
  Transmission Date: 20090719
  Serious: Yes (Death)
  Sender: FDA-Public Use
  Company Number: US-RANBAXY-2009RR-20648

PATIENT
  Age: 31 Year
  Sex: Male

DRUGS (7)
  1. HYDROCODONE BITARTRATE [Suspect]
     Indication: SUICIDAL IDEATION
     Route: 048
  2. CYCLOBENZAPRINE HCL [Suspect]
     Indication: SUICIDAL IDEATION
     Route: 048
  3. RISPERIDONE [Suspect]
     Indication: SUICIDAL IDEATION
     Route: 048
  4. DULOXETINE [Suspect]
     Indication: SUICIDAL IDEATION
     Route: 048
  5. METHADONE HCL [Suspect]
     Indication: SUICIDAL IDEATION
     Route: 048
  6. OXYCODONE AND ACETAMINOPHEN [Suspect]
     Indication: SUICIDAL IDEATION
     Route: 048
  7. ESZOPICLONE [Suspect]
     Indication: SUICIDAL IDEATION
     Route: 048

REACTIONS (1)
  - SUICIDAL IDEATION [None]
